FAERS Safety Report 20996805 (Version 1)
Quarter: 2022Q2

REPORT INFORMATION
  Report Type: Spontaneous
  Country: CN (occurrence: CN)
  Receive Date: 20220623
  Receipt Date: 20220623
  Transmission Date: 20220720
  Serious: Yes (Other)
  Sender: FDA-Public Use
  Company Number: CN-Accord-265233

PATIENT
  Age: 49 Year
  Sex: Female

DRUGS (4)
  1. CISPLATIN [Suspect]
     Active Substance: CISPLATIN
     Indication: Neurofibrosarcoma
     Dosage: CUMULATIVE DOSE: 1 CYCLE
     Dates: start: 2018, end: 2018
  2. DOCETAXEL [Suspect]
     Active Substance: DOCETAXEL
     Indication: Neurofibrosarcoma
  3. ETOPOSIDE [Suspect]
     Active Substance: ETOPOSIDE
     Indication: Neurofibrosarcoma
     Dosage: CUMULATIVE DOSE: 1 CYCLE
     Dates: start: 2018, end: 2018
  4. GEMCITABINE [Suspect]
     Active Substance: GEMCITABINE
     Indication: Neurofibrosarcoma

REACTIONS (4)
  - Drug ineffective [Unknown]
  - Haemothorax [Unknown]
  - Atelectasis [Unknown]
  - Bronchial obstruction [Unknown]

NARRATIVE: CASE EVENT DATE: 20180101
